FAERS Safety Report 5256301-0 (Version None)
Quarter: 2007Q1

REPORT INFORMATION
  Report Type: 
  Country: None (occurrence: None)
  Receive Date: 20070306
  Receipt Date: 20070221
  Transmission Date: 20070707
  Serious: Yes (Other)
  Sender: FDA-Public Use
  Company Number: PHBS2007BR03521

PATIENT
  Age: 18 Year
  Sex: Male

DRUGS (3)
  1. TEGRETOL [Suspect]
     Indication: EPILEPSY
     Dosage: 200 MG/DAY
     Route: 065
  2. GARDAN TAB [Suspect]
     Dosage: 100 MG/DAY
     Route: 065
  3. HYDANTAL [Suspect]
     Dosage: 100 MG/DAY
     Route: 065

REACTIONS (7)
  - CALCIFYING FIBROUS PSEUDOTUMOUR [None]
  - GINGIVAL BLEEDING [None]
  - GINGIVAL DISCOLOURATION [None]
  - GINGIVAL HYPERPLASIA [None]
  - HISTOLOGY ABNORMAL [None]
  - PYOGENIC GRANULOMA [None]
  - TOOTH DEPOSIT [None]
